FAERS Safety Report 15233756 (Version 2)
Quarter: 2018Q3

REPORT INFORMATION
  Report Type: Spontaneous
  Country: US (occurrence: US)
  Receive Date: 20180802
  Receipt Date: 20180822
  Transmission Date: 20181010
  Serious: Yes (Other)
  Sender: FDA-Public Use
  Company Number: US-PRINSTON PHARMACEUTICAL INC.-2018PRN00522

PATIENT
  Age: 57 Year
  Sex: Female
  Weight: 104.31 kg

DRUGS (3)
  1. VALSARTAN. [Suspect]
     Active Substance: VALSARTAN
     Dosage: 160 MG, 1X/DAY
     Route: 048
     Dates: start: 2008
  2. VALSARTAN. [Suspect]
     Active Substance: VALSARTAN
     Indication: HYPERTENSION
     Dosage: 160 MG, 1X/DAY
     Route: 048
     Dates: start: 2008, end: 20180719
  3. CALCIUM [Concomitant]
     Active Substance: CALCIUM

REACTIONS (8)
  - Pain [Not Recovered/Not Resolved]
  - Drug effect decreased [Recovered/Resolved]
  - Pruritus [Unknown]
  - Bone pain [Not Recovered/Not Resolved]
  - Breast cancer female [Recovered/Resolved]
  - Radiation skin injury [Unknown]
  - Skin weeping [Unknown]
  - Paraesthesia [Unknown]

NARRATIVE: CASE EVENT DATE: 20170102
